FAERS Safety Report 9953751 (Version 1)
Quarter: 2014Q1

REPORT INFORMATION
  Report Type: Spontaneous
  Country: US (occurrence: US)
  Receive Date: 20140304
  Receipt Date: 20140304
  Transmission Date: 20141002
  Serious: No
  Sender: FDA-Public Use
  Company Number: US-AMGEN-USASP2013075511

PATIENT
  Age: 6 Year
  Sex: Female

DRUGS (1)
  1. ENBREL [Suspect]
     Indication: AMYLOIDOSIS
     Dosage: 25 MG, UNK
     Route: 065
     Dates: start: 20120830

REACTIONS (1)
  - Sinusitis [Unknown]
